FAERS Safety Report 5268026-6 (Version None)
Quarter: 2007Q1

REPORT INFORMATION
  Report Type: 
  Country: None (occurrence: None)
  Receive Date: 20070319
  Receipt Date: 20070307
  Transmission Date: 20070707
  Serious: Yes (Disabling)
  Sender: FDA-Public Use
  Company Number: PHRM2007FR01013

PATIENT
  Age: 84 Year
  Sex: Male

DRUGS (7)
  1. AREDIA [Suspect]
     Indication: MULTIPLE MYELOMA
     Dosage: 90 MG, QMO
     Route: 042
     Dates: start: 20010301
  2. MELPHALAN [Concomitant]
     Indication: MULTIPLE MYELOMA
     Dosage: 14 COURSES
     Dates: start: 20010301
  3. MELPHALAN [Concomitant]
     Dates: start: 20040201, end: 20041201
  4. THALIDOMIDE [Concomitant]
     Dates: start: 20060101
  5. ZOMETA [Suspect]
     Indication: MULTIPLE MYELOMA
     Dosage: 4 MG, QMO
     Route: 042
  6. PREDNISONE [Concomitant]
     Indication: MULTIPLE MYELOMA
     Dosage: 14 COURSES
     Dates: start: 20010301
  7. PREDNISONE [Concomitant]
     Dates: start: 20040201, end: 20041201

REACTIONS (2)
  - OSTEONECROSIS [None]
  - TOOTH EXTRACTION [None]
